FAERS Safety Report 6843465-8 (Version None)
Quarter: 2010Q3

REPORT INFORMATION
  Report Type: 
  Country: None (occurrence: None)
  Receive Date: 20100712
  Receipt Date: 20100708
  Transmission Date: 20110219
  Serious: Yes (Hospitalization)
  Sender: FDA-Public Use
  Company Number: 2007SP019526

PATIENT
  Age: 72 Year
  Sex: Male
  Weight: 57 kg

DRUGS (16)
  1. TEMODAL [Suspect]
     Indication: GLIOBLASTOMA MULTIFORME
     Dosage: 75 MG/M2; QD; PO 150 MG/M2; QD; PO
     Route: 048
     Dates: start: 20060125, end: 20061205
  2. TEMODAL [Suspect]
     Indication: GLIOBLASTOMA MULTIFORME
     Dosage: 75 MG/M2; QD; PO 150 MG/M2; QD; PO
     Route: 048
     Dates: start: 20070106, end: 20070110
  3. TEMODAL [Suspect]
     Indication: GLIOBLASTOMA MULTIFORME
     Dosage: 75 MG/M2; QD; PO 150 MG/M2; QD; PO
     Route: 048
     Dates: start: 20070203, end: 20070207
  4. TEMODAL [Suspect]
     Indication: GLIOBLASTOMA MULTIFORME
     Dosage: 75 MG/M2; QD; PO 150 MG/M2; QD; PO
     Route: 048
     Dates: start: 20070316, end: 20070320
  5. TEMODAL [Suspect]
     Indication: GLIOBLASTOMA MULTIFORME
     Dosage: 75 MG/M2; QD; PO 150 MG/M2; QD; PO
     Route: 048
     Dates: start: 20070321, end: 20070425
  6. RINDERON (BETAMETHASONE) (BETAMETHASONE /00008501/) [Suspect]
     Indication: GLIOBLASTOMA MULTIFORME
     Dosage: ;PO
     Route: 048
     Dates: end: 20070208
  7. COTRIM [Concomitant]
  8. ZOFRAN [Concomitant]
  9. PHENYTOIN SODIUM [Concomitant]
  10. EVIPROSTAT [Concomitant]
  11. LENDORMIN [Concomitant]
  12. HALCION [Concomitant]
  13. SYMMETREL [Concomitant]
  14. CASTER D [Concomitant]
  15. MAGLAX [Concomitant]
  16. BIOFERMIN [Concomitant]

REACTIONS (1)
  - PULMONARY EMBOLISM [None]
